FAERS Safety Report 6327399-3 (Version None)
Quarter: 2009Q3

REPORT INFORMATION
  Report Type: 
  Country: None (occurrence: None)
  Receive Date: 20090818
  Receipt Date: 20090522
  Transmission Date: 20100115
  Serious: No
  Sender: FDA-Public Use
  Company Number: WAES 0905USA03342

PATIENT
  Age: 74 Year
  Sex: Female
  Weight: 58.514 kg

DRUGS (10)
  1. JANUVIA [Suspect]
     Indication: DIABETES MELLITUS
     Dosage: 100 MG/DAILY/PO;
     Route: 048
     Dates: start: 20090101, end: 20090101
  2. JANUVIA [Suspect]
     Indication: DIABETES MELLITUS
     Dosage: 100 MG/DAILY/PO;
     Route: 048
     Dates: start: 20080901
  3. ACTOS [Concomitant]
  4. FOSAMAX [Concomitant]
  5. NEXIUM [Concomitant]
  6. ASPIRIN [Concomitant]
  7. CALCIUM (UNSPECIFIED) [Concomitant]
  8. GLIPIZIDE [Concomitant]
  9. METFORMIN HYDROCHLORIDE [Concomitant]
  10. VITAMINS (UNSPECIFIED) [Concomitant]

REACTIONS (2)
  - MEDICATION RESIDUE [None]
  - NO ADVERSE EVENT [None]
